FAERS Safety Report 16834274 (Version 1)
Quarter: 2019Q3

REPORT INFORMATION
  Report Type: Spontaneous
  Country: CA (occurrence: CA)
  Receive Date: 20190920
  Receipt Date: 20190920
  Transmission Date: 20191005
  Serious: Yes (Disabling, Other)
  Sender: FDA-Public Use
  Company Number: CA-PFIZER INC-2019401947

PATIENT
  Age: 76 Year
  Sex: Male

DRUGS (8)
  1. ZYVOXAM [Suspect]
     Active Substance: LINEZOLID
     Indication: MYCOBACTERIAL INFECTION
     Dosage: 600 MG, 1X/DAY
     Route: 048
  2. ZYVOXAM [Suspect]
     Active Substance: LINEZOLID
     Indication: LUNG INFECTION
  3. LANSOPRAZOLE. [Concomitant]
     Active Substance: LANSOPRAZOLE
     Dosage: UNK
  4. AMIKACIN SULFATE. [Concomitant]
     Active Substance: AMIKACIN SULFATE
     Dosage: UNK
  5. D-TABS [Concomitant]
     Active Substance: CHOLECALCIFEROL
     Dosage: UNK
  6. CLARITHROMYCIN. [Concomitant]
     Active Substance: CLARITHROMYCIN
     Dosage: UNK
  7. PRIMAXIN IV [Concomitant]
     Active Substance: CILASTATIN SODIUM\IMIPENEM
     Dosage: UNK
  8. ALFUZOSIN [Concomitant]
     Active Substance: ALFUZOSIN
     Dosage: UNK

REACTIONS (3)
  - Pain in extremity [Not Recovered/Not Resolved]
  - Hypoaesthesia [Not Recovered/Not Resolved]
  - Hypoacusis [Not Recovered/Not Resolved]
